FAERS Safety Report 5401882-7 (Version None)
Quarter: 2007Q3

REPORT INFORMATION
  Report Type: 
  Country: None (occurrence: None)
  Receive Date: 20070731
  Receipt Date: 20070720
  Transmission Date: 20080115
  Serious: Yes (Other)
  Sender: FDA-Public Use
  Company Number: US-ELI_LILLY_AND_COMPANY-US200707005449

PATIENT
  Age: 56 Year
  Sex: Female

DRUGS (3)
  1. BYETTA [Suspect]
     Dosage: 10 UG, UNK
  2. METHADONE HYDROCHLORIDE [Concomitant]
  3. PERCOCET [Concomitant]

REACTIONS (2)
  - HYPOGLYCAEMIA [None]
  - THYROID CANCER [None]
